FAERS Safety Report 7058459-X (Version None)
Quarter: 2010Q4

REPORT INFORMATION
  Report Type: 
  Country: None (occurrence: None)
  Receive Date: 20101022
  Receipt Date: 20101020
  Transmission Date: 20110411
  Serious: Yes (Hospitalization, Other)
  Sender: FDA-Public Use
  Company Number: GXKR2010DE09140

PATIENT
  Age: 88 Year
  Sex: Female
  Weight: 46 kg

DRUGS (8)
  1. TORASEMID 1A PHARMA (NGX) [Suspect]
     Dosage: 15 MG, QD
     Route: 048
     Dates: start: 20100301, end: 20100710
  2. SALBUTAMOL SANDOZ (NGX) [Suspect]
     Indication: CHRONIC OBSTRUCTIVE PULMONARY DISEASE
     Dosage: IF REQUIRED
     Dates: start: 20100414, end: 20100701
  3. IBU AKUT 1A PHARMA (NGX) [Suspect]
     Dosage: 1X1 OR 2X1 AT LEAST 4 TIMES A WEEK
     Route: 048
     Dates: start: 20100104, end: 20100710
  4. PANTOPRAZOLE [Concomitant]
     Dosage: UNK
     Route: 048
     Dates: start: 20091201
  5. SPIRONOLACTONE [Concomitant]
  6. RAMIPRIL [Concomitant]
  7. PREDNISOLONE [Concomitant]
  8. FOLIC ACID [Concomitant]

REACTIONS (1)
  - HEPATITIS ACUTE [None]
